FAERS Safety Report 19706063 (Version 1)
Quarter: 2021Q3

REPORT INFORMATION
  Report Type: Spontaneous
  Country: DE (occurrence: DE)
  Receive Date: 20210817
  Receipt Date: 20210817
  Transmission Date: 20211014
  Serious: Yes (Hospitalization)
  Sender: FDA-Public Use
  Company Number: DE-TEVA-2021-DE-1941782

PATIENT
  Age: 69 Year
  Sex: Male

DRUGS (4)
  1. AMLODIPIN [Suspect]
     Active Substance: AMLODIPINE BESYLATE
     Dosage: 5 MILLIGRAM DAILY; 0?0?1?0
     Route: 048
  2. VITAMIN B12 1000G INJECT JENAPHARM [Concomitant]
     Dosage: 1000 MCG, MONDAYS AND FRIDAYS
     Route: 042
  3. AMLODIPIN/HYDROCHLOROTHIAZID/OLMESARTAN [Suspect]
     Active Substance: AMLODIPINE\HYDROCHLOROTHIAZIDE\OLMESARTAN
     Dosage: 1 DOSAGE FORMS DAILY; 5|12.5|40 MG, 1?0?0?0
     Route: 048
  4. FOLSAURE [Concomitant]
     Active Substance: FOLIC ACID
     Dosage: 5 MILLIGRAM DAILY; 1?0?0?0
     Route: 048

REACTIONS (1)
  - Fall [Recovering/Resolving]

NARRATIVE: CASE EVENT DATE: 20200722
